FAERS Safety Report 8255247-3 (Version None)
Quarter: 2012Q1

REPORT INFORMATION
  Report Type: 
  Country: None (occurrence: None)
  Receive Date: 20120330
  Receipt Date: 20120309
  Transmission Date: 20120608
  Serious: Yes (Other)
  Sender: FDA-Public Use
  Company Number: 2012-1305

PATIENT
  Age: 38 Year
  Sex: Female

DRUGS (3)
  1. LEVOXYL [Concomitant]
  2. SOMATULINE DEPOT [Suspect]
     Indication: ACROMEGALY
     Dosage: 90 MG (90 MG, 1 IN 28 D), INTRAMUSCULAR
     Route: 030
     Dates: start: 20100626, end: 20111201
  3. LO-OGESTEROL (EUGYNON /00022701/) [Concomitant]

REACTIONS (2)
  - UTERINE LEIOMYOMA [None]
  - AMENORRHOEA [None]
